FAERS Safety Report 9865195 (Version 2)
Quarter: 2014Q1

REPORT INFORMATION
  Report Type: Spontaneous
  Country: US (occurrence: US)
  Receive Date: 20140203
  Receipt Date: 20140203
  Transmission Date: 20141002
  Serious: No
  Sender: FDA-Public Use
  Company Number: US-ALLERGAN-1303569US

PATIENT
  Age: 57 Year
  Sex: Female

DRUGS (3)
  1. RESTASIS [Suspect]
     Indication: DRY EYE
     Dosage: 2 GTT, BID
     Route: 047
     Dates: end: 20130310
  2. LISINOPRIL [Concomitant]
     Indication: HYPERTENSION
     Route: 048
  3. HYDROCHLOORTHIAZIDE [Concomitant]
     Indication: HYPERTENSION
     Dosage: UNK UNK, SINGLE
     Route: 048

REACTIONS (5)
  - Eyelid irritation [Recovering/Resolving]
  - Eyelid irritation [Recovering/Resolving]
  - Eye irritation [Recovering/Resolving]
  - Eye irritation [Recovering/Resolving]
  - Eyelid oedema [Recovering/Resolving]
